FAERS Safety Report 15036843 (Version 10)
Quarter: 2023Q1

REPORT INFORMATION
  Report Type: Spontaneous
  Country: US (occurrence: US)
  Receive Date: 20180620
  Receipt Date: 20230126
  Transmission Date: 20230418
  Serious: No
  Sender: FDA-Public Use
  Company Number: US-PFIZER INC-2018245845

PATIENT
  Age: 40 Year
  Sex: Male
  Weight: 94.35 kg

DRUGS (6)
  1. XELJANZ [Suspect]
     Active Substance: TOFACITINIB CITRATE
     Indication: Psoriatic arthropathy
     Dosage: 5 MG, 2X/DAY
     Route: 048
     Dates: start: 2017
  2. XELJANZ [Suspect]
     Active Substance: TOFACITINIB CITRATE
     Indication: Pustular psoriasis
     Dosage: 5 MG, 2X/DAY
     Route: 048
     Dates: start: 20180417
  3. XELJANZ [Suspect]
     Active Substance: TOFACITINIB CITRATE
     Indication: Alopecia
     Dosage: 5 MG, 2X/DAY
     Route: 048
     Dates: end: 202004
  4. XELJANZ [Suspect]
     Active Substance: TOFACITINIB CITRATE
     Indication: Alopecia totalis
  5. XELJANZ [Suspect]
     Active Substance: TOFACITINIB CITRATE
     Indication: Psoriasis
  6. METHOTREXATE [Concomitant]
     Active Substance: METHOTREXATE
     Indication: Immunisation
     Dosage: UNK
     Dates: start: 202001

REACTIONS (10)
  - Drug ineffective [Unknown]
  - Off label use [Unknown]
  - Drug effective for unapproved indication [Unknown]
  - Suspected COVID-19 [Not Recovered/Not Resolved]
  - Influenza like illness [Unknown]
  - Gastroenteritis viral [Unknown]
  - Cough [Unknown]
  - Rhinorrhoea [Unknown]
  - Headache [Unknown]
  - Respiratory disorder [Unknown]

NARRATIVE: CASE EVENT DATE: 20201210
